FAERS Safety Report 16723517 (Version 1)
Quarter: 2019Q3

REPORT INFORMATION
  Report Type: Spontaneous
  Country: US (occurrence: US)
  Receive Date: 20190821
  Receipt Date: 20190821
  Transmission Date: 20191005
  Serious: No
  Sender: FDA-Public Use
  Company Number: US-TEVA-2019-US-1095135

PATIENT
  Age: 66 Year
  Sex: Male

DRUGS (9)
  1. ASPIRIN. [Concomitant]
     Active Substance: ASPIRIN
  2. IRON [Concomitant]
     Active Substance: IRON
  3. CETIRIZINE W/PSEUDOEPHEDRINE [Suspect]
     Active Substance: CETIRIZINE HYDROCHLORIDE\PSEUDOEPHEDRINE HYDROCHLORIDE
     Indication: COUGH
     Dosage: 120 MILLIGRAM DAILY;
     Route: 048
     Dates: start: 20190809, end: 20190811
  4. NORVASC [Concomitant]
     Active Substance: AMLODIPINE BESYLATE
  5. VITAMINS NOS [Concomitant]
     Active Substance: VITAMINS
  6. COQ10 [Concomitant]
     Active Substance: UBIDECARENONE
  7. METOPROLOL. [Concomitant]
     Active Substance: METOPROLOL
  8. ASPIRIN. [Concomitant]
     Active Substance: ASPIRIN
     Route: 065
  9. CRESTOR [Concomitant]
     Active Substance: ROSUVASTATIN CALCIUM
     Dates: start: 201811

REACTIONS (7)
  - Abnormal dreams [Recovered/Resolved]
  - Blood glucose abnormal [Unknown]
  - Product administered to patient of inappropriate age [Unknown]
  - Palpitations [Recovered/Resolved]
  - Blood pressure decreased [Unknown]
  - Fatigue [Recovered/Resolved]
  - Product use in unapproved indication [Unknown]

NARRATIVE: CASE EVENT DATE: 20190809
